FAERS Safety Report 23786852 (Version 1)
Quarter: 2024Q2

REPORT INFORMATION
  Report Type: Spontaneous
  Country: CA (occurrence: CA)
  Receive Date: 20240426
  Receipt Date: 20240426
  Transmission Date: 20240716
  Serious: Yes (Hospitalization, Other)
  Sender: FDA-Public Use
  Company Number: CA-AUROBINDO-AUR-APL-2024-019522

PATIENT
  Age: 40 Year
  Sex: Female

DRUGS (3)
  1. CEPHALEXIN [Suspect]
     Active Substance: CEPHALEXIN
     Indication: Sialoadenitis
     Dosage: 2 DOSAGE FORM, TWO TIMES A DAY
     Route: 065
  2. KESIMPTA [Suspect]
     Active Substance: OFATUMUMAB
     Indication: Relapsing-remitting multiple sclerosis
     Dosage: UNK
     Route: 065
  3. KESIMPTA [Suspect]
     Active Substance: OFATUMUMAB
     Dosage: UNK
     Route: 058

REACTIONS (12)
  - Sialoadenitis [Unknown]
  - Chest discomfort [Unknown]
  - Dizziness [Unknown]
  - Ear pain [Unknown]
  - Facial pain [Unknown]
  - Illness [Unknown]
  - Infection [Unknown]
  - Malaise [Unknown]
  - Nausea [Unknown]
  - Pharyngitis [Unknown]
  - Reflux gastritis [Unknown]
  - Off label use [Unknown]
